FAERS Safety Report 23371346 (Version 3)
Quarter: 2024Q1

REPORT INFORMATION
  Report Type: Report from Study
  Country: CN (occurrence: CN)
  Receive Date: 20240105
  Receipt Date: 20240117
  Transmission Date: 20240409
  Serious: No
  Sender: FDA-Public Use
  Company Number: CN-PFIZER INC-PV202300210166

PATIENT
  Age: 78 Year
  Sex: Male

DRUGS (33)
  1. NIRMATRELVIR\RITONAVIR [Suspect]
     Active Substance: NIRMATRELVIR\RITONAVIR
     Dosage: [RITONAVIR 100 MG]/[NIRMATRELVIR 300 MG], 2X/DAY
     Dates: start: 20220416, end: 20220420
  2. NIRMATRELVIR\RITONAVIR [Suspect]
     Active Substance: NIRMATRELVIR\RITONAVIR
     Dosage: [RITONAVIR 100 MG]/[NIRMATRELVIR 300 MG], 2X/DAY
     Dates: start: 20220513, end: 20220517
  3. HERBALS\MENTHOL [Concomitant]
     Active Substance: HERBALS\MENTHOL
     Indication: Antiviral treatment
     Dosage: UNK
     Route: 048
     Dates: start: 20220412, end: 20220421
  4. FUROSEMIDE [Concomitant]
     Active Substance: FUROSEMIDE
     Indication: Polyuria
     Dosage: UNK
     Route: 048
     Dates: start: 20220414, end: 20220421
  5. SPIRONOLACTONE [Concomitant]
     Active Substance: SPIRONOLACTONE
     Indication: Polyuria
     Dosage: UNK
     Route: 048
     Dates: start: 20220414, end: 20220421
  6. MONTMORILLONITE [Concomitant]
     Active Substance: MONTMORILLONITE
     Indication: Diarrhoea
     Dosage: POWDER
     Route: 048
     Dates: start: 20220414, end: 20220421
  7. METOPROLOL [Concomitant]
     Active Substance: METOPROLOL
     Indication: Heart rate increased
     Dosage: UNK
     Route: 048
     Dates: start: 20220414, end: 20220418
  8. PANTOPRAZOLE [Concomitant]
     Active Substance: PANTOPRAZOLE
     Indication: Prophylaxis
     Dosage: UNK
     Route: 048
     Dates: start: 20220414, end: 20220421
  9. NADROPARIN CALCIUM [Concomitant]
     Active Substance: NADROPARIN CALCIUM
     Indication: Anticoagulant therapy
     Dosage: NADROPARIN CALCIUM INJECTION (SUBERIN)
     Route: 058
     Dates: start: 20220416, end: 20220416
  10. LEVOFLOXACIN [Concomitant]
     Active Substance: LEVOFLOXACIN
     Indication: Anti-infective therapy
     Dosage: UNK
     Route: 048
     Dates: start: 20220416, end: 20220421
  11. POTASSIUM CHLORIDE [Concomitant]
     Active Substance: POTASSIUM CHLORIDE
     Indication: Mineral supplementation
     Dosage: UNK
     Route: 048
     Dates: start: 20220417, end: 20220421
  12. COMPOUND AMINO ACID INJECTION (18AA-VII) [Concomitant]
     Indication: Nutritional supplementation
     Dosage: COMPOUND AMINO ACID INJECTION (18AA-VII) (JIESU)
     Route: 042
     Dates: start: 20220421, end: 20220421
  13. TRIGLYCERIDES,UNSPECIFIED LENGTH [Concomitant]
     Active Substance: TRIGLYCERIDES,UNSPECIFIED LENGTH
     Indication: Nutritional supplementation
     Dosage: (B) 20% MEDIUM/LONG CHAIN FAT EMULSION INJECTION (C6-24) (FORCENENG)
     Route: 042
     Dates: start: 20220421, end: 20220421
  14. INTERFERON ALFA-2B [Concomitant]
     Active Substance: INTERFERON ALFA-2B
     Indication: Antiviral treatment
     Dosage: HUMAN INTERFERON A2B SPRAY
     Route: 045
     Dates: start: 20220422, end: 20220517
  15. MEROPENEM [Concomitant]
     Active Substance: MEROPENEM
     Indication: Anti-infective therapy
     Dosage: UNK
     Route: 042
     Dates: start: 20220422, end: 20220422
  16. FUROSEMIDE [Concomitant]
     Active Substance: FUROSEMIDE
     Indication: Polyuria
     Dosage: UNK
     Route: 042
     Dates: start: 20220423, end: 20220424
  17. DYPHYLLINE [Concomitant]
     Active Substance: DYPHYLLINE
     Indication: Asthma
     Dosage: UNK
     Route: 050
     Dates: start: 20220423, end: 20220502
  18. THYMALFASIN [Concomitant]
     Active Substance: THYMALFASIN
     Indication: Immune system disorder
     Dosage: THYMUS FASIN
     Route: 058
     Dates: start: 20220423, end: 20220517
  19. HUMAN IMMUNOGLOBULIN G [Concomitant]
     Active Substance: HUMAN IMMUNOGLOBULIN G
     Indication: Immune system disorder
     Dosage: UNK
     Route: 042
     Dates: start: 20220423, end: 20220502
  20. REBAMIPIDE [Concomitant]
     Active Substance: REBAMIPIDE
     Indication: Prophylaxis
     Dosage: UNK
     Route: 048
     Dates: start: 20220429, end: 20220502
  21. ESOMEPRAZOLE SODIUM [Concomitant]
     Active Substance: ESOMEPRAZOLE SODIUM
     Indication: Prophylaxis
     Dosage: (B 10%) ESOMEPRAZOLE SODIUM FOR INJECTION
     Route: 050
     Dates: start: 20220423, end: 20220502
  22. FLEXBUMIN [Concomitant]
     Active Substance: ALBUMIN HUMAN
     Indication: Nutritional supplementation
     Dosage: (B10%) HUMAN BLOOD ALBUMIN
     Route: 050
     Dates: start: 20220423, end: 20220502
  23. FAT EMULSION, AMINO ACIDS (17) AND GLUCOSE (11%) [Concomitant]
     Indication: Nutritional supplementation
     Dosage: (B) FAT EMULSION AMINO ACIDS (17) GLUCOSE (11%) INJECTION
     Route: 050
     Dates: start: 20220423, end: 20220502
  24. SOMATOSTATIN [Concomitant]
     Active Substance: SOMATOSTATIN
     Indication: Haemostasis
     Dosage: (B10%) SOMATOSTATIN FOR INJECTION (STANIN)
     Route: 042
     Dates: start: 20220502, end: 20220506
  25. COENZYME Q10 [Concomitant]
     Active Substance: DIETARY SUPPLEMENT\UBIDECARENONE
     Indication: Prophylaxis
     Dosage: (B 10%) COENZYME QLO CAPSULE
     Route: 048
     Dates: start: 20220506, end: 20220517
  26. ISOSORBIDE MONONITRATE [Concomitant]
     Active Substance: ISOSORBIDE MONONITRATE
     Indication: Prophylaxis
     Dosage: EXTENDED-RELEASE CAPSULES
     Route: 048
     Dates: start: 20220506, end: 20220517
  27. AMBROXOL HYDROCHLORIDE [Concomitant]
     Active Substance: AMBROXOL HYDROCHLORIDE
     Indication: Productive cough
     Dosage: (B10%) AMBROXOL HYDROCHLORIDE INJECTION (MUSULTAN)
     Route: 042
     Dates: start: 20220513, end: 20220517
  28. BIFIDOBACTERIUM LONGUM [Concomitant]
     Active Substance: BIFIDOBACTERIUM LONGUM
     Indication: Dysbiosis
     Dosage: BIFIDOBACTERIUM TRIPLE VIABLE CAPSULES
     Route: 048
     Dates: start: 20220516, end: 20220517
  29. TORSEMIDE [Concomitant]
     Active Substance: TORSEMIDE
     Indication: Polyuria
     Dosage: TORSEMIDE FOR INJECTION (ZETONG)
     Route: 042
     Dates: start: 20220507, end: 20220507
  30. CALCIUM CHLORIDE\POTASSIUM CHLORIDE\SODIUM CHLORIDE\SODIUM LACTATE [Concomitant]
     Active Substance: CALCIUM CHLORIDE\POTASSIUM CHLORIDE\SODIUM CHLORIDE\SODIUM LACTATE
     Indication: Fluid replacement
     Dosage: (A) SODIUM LACTATE RINGER INJECTION
     Route: 050
     Dates: start: 20220423, end: 20220502
  31. GLYCERIN [Concomitant]
     Active Substance: GLYCERIN
     Indication: Laxative supportive care
     Dosage: UNK
     Route: 054
     Dates: start: 20220508, end: 20220508
  32. VITAMIN C [Concomitant]
     Active Substance: ASCORBIC ACID
     Indication: Fluid replacement
     Dosage: UNK
     Route: 050
     Dates: start: 20220423, end: 20220502
  33. VITAMIN B6 [Concomitant]
     Active Substance: PYRIDOXINE HYDROCHLORIDE
     Indication: Nutritional supplementation
     Dosage: UNK
     Route: 050
     Dates: start: 20220421, end: 20220421

REACTIONS (1)
  - Overdose [Unknown]
